FAERS Safety Report 7614123-7 (Version None)
Quarter: 2011Q3

REPORT INFORMATION
  Report Type: 
  Country: None (occurrence: None)
  Receive Date: 20110708
  Receipt Date: 20110624
  Transmission Date: 20111222
  Serious: Yes (Death)
  Sender: FDA-Public Use
  Company Number: 2011-2008

PATIENT
  Age: 76 Year
  Sex: Female
  Weight: 44 kg

DRUGS (15)
  1. CYMBALTA [Concomitant]
  2. VITAMIN D [Concomitant]
  3. VICODIN [Concomitant]
  4. FUROSEMIDE [Concomitant]
  5. SOMATULINE DEPOT [Suspect]
     Indication: ACROMEGALY
     Dosage: 60 MG (60 MG , 1 IN 28 D), SUBCUTANEOUS
     Route: 058
     Dates: start: 20110201
  6. FLUTICASONE PROPIONATE [Concomitant]
  7. KADIAN [Concomitant]
  8. METOPROLOL SUCCINATE [Concomitant]
  9. CLONIDINE HCL [Concomitant]
  10. LEVOTHYROXINE SODIUM [Concomitant]
  11. MEGACE (MESTROL ACETATE) [Concomitant]
  12. LIPITOR [Concomitant]
  13. ENALAPRIL MALEATE [Concomitant]
  14. GLYCOLAX (MACROGOL) [Concomitant]
  15. ASPIRIN [Concomitant]

REACTIONS (7)
  - RENAL FAILURE [None]
  - VASCULAR DEMENTIA [None]
  - MENINGIOMA [None]
  - BLOOD SODIUM INCREASED [None]
  - LOSS OF CONSCIOUSNESS [None]
  - BLOOD POTASSIUM INCREASED [None]
  - GENERAL PHYSICAL HEALTH DETERIORATION [None]
